FAERS Safety Report 20420699 (Version 1)
Quarter: 2022Q1

REPORT INFORMATION
  Report Type: Spontaneous
  Country: NL (occurrence: NL)
  Receive Date: 20220203
  Receipt Date: 20220203
  Transmission Date: 20220424
  Serious: Yes (Other)
  Sender: FDA-Public Use
  Company Number: None

PATIENT
  Age: 71 Year
  Sex: Female
  Weight: 64 kg

DRUGS (8)
  1. AFLIBERCEPT [Suspect]
     Active Substance: AFLIBERCEPT
     Indication: Glaucoma
     Dosage: 1 DF, Q5W
     Dates: start: 2018
  2. AFLIBERCEPT [Suspect]
     Active Substance: AFLIBERCEPT
     Indication: Diabetic retinopathy
  3. INSULIN GLARGINE [Concomitant]
     Active Substance: INSULIN GLARGINE
     Dosage: INJECTION SOLUTION, 100 UNITS/ML (UNITS PER MILLILITER)
  4. INSULIN ASPART [Concomitant]
     Active Substance: INSULIN ASPART
     Dosage: INJECTION SOLUTION, 100 UNITS/ML (UNITS PER MILLILITER)
  5. AMLODIPINE [Concomitant]
     Active Substance: AMLODIPINE BESYLATE
     Dosage: TABLET, 5 MG (MILLIGRAM)
  6. SIMVASTATIN [Concomitant]
     Active Substance: SIMVASTATIN
     Dosage: FILMOMHULDE TABLET, 20 MG (MILLIGRAM)
  7. TIMOLOL\TRAVOPROST [Concomitant]
     Active Substance: TIMOLOL\TRAVOPROST
     Dosage: OOGDRUPPELS, 40 ?G (MICROGRAM)/5 MG/ML (MILLIGRAM PER MILLILITER)
  8. RAMIPRIL [Concomitant]
     Active Substance: RAMIPRIL
     Dosage: 10 MG

REACTIONS (1)
  - Blindness transient [Recovered/Resolved]

NARRATIVE: CASE EVENT DATE: 20211206
